FAERS Safety Report 6717684-5 (Version None)
Quarter: 2010Q2

REPORT INFORMATION
  Report Type: 
  Country: None (occurrence: None)
  Receive Date: 20100505
  Receipt Date: 20100428
  Transmission Date: 20101027
  Serious: Yes (Other)
  Sender: FDA-Public Use
  Company Number: A0857070A

PATIENT
  Age: 55 Year
  Sex: Female

DRUGS (1)
  1. UREA PEROXIDE [Suspect]
     Indication: CERUMEN IMPACTION
     Dates: start: 20100425

REACTIONS (7)
  - DEAFNESS UNILATERAL [None]
  - EAR DISCOMFORT [None]
  - EAR DISORDER [None]
  - HYPERSENSITIVITY [None]
  - INFLAMMATION [None]
  - NONSPECIFIC REACTION [None]
  - TINNITUS [None]
